FAERS Safety Report 8152335-7 (Version None)
Quarter: 2012Q1

REPORT INFORMATION
  Report Type: 
  Country: None (occurrence: None)
  Receive Date: 20120221
  Receipt Date: 20120211
  Transmission Date: 20120608
  Serious: Yes (Other)
  Sender: FDA-Public Use
  Company Number: US-BAYER-2012-015845

PATIENT
  Age: 45 Year
  Sex: Female

DRUGS (2)
  1. MIRENA [Suspect]
     Indication: CONTRACEPTION
     Dosage: UNK
     Dates: start: 20120208, end: 20120211
  2. MIRENA [Suspect]
     Dosage: UNK
     Dates: start: 20070101, end: 20120208

REACTIONS (2)
  - DEVICE EXPULSION [None]
  - GENITAL HAEMORRHAGE [None]
